FAERS Safety Report 5595588-1 (Version None)
Quarter: 2008Q1

REPORT INFORMATION
  Report Type: 
  Country: None (occurrence: None)
  Receive Date: 20080118
  Receipt Date: 20080109
  Transmission Date: 20080703
  Serious: Yes (Hospitalization)
  Sender: FDA-Public Use
  Company Number: PHBS2008HR00754

PATIENT
  Age: 68 Year
  Sex: Male

DRUGS (1)
  1. CYCLOSPORINE [Suspect]
     Indication: LIVER TRANSPLANT
     Dosage: 100 MG, BID
     Route: 065

REACTIONS (10)
  - BLOOD URIC ACID INCREASED [None]
  - C-REACTIVE PROTEIN INCREASED [None]
  - CALCULUS URINARY [None]
  - CRYSTAL URINE PRESENT [None]
  - EXTRACORPOREAL SHOCK WAVE THERAPY [None]
  - HYDRONEPHROSIS [None]
  - NEPHROSTOMY [None]
  - RENAL COLIC [None]
  - STENT PLACEMENT [None]
  - WHITE BLOOD CELL COUNT INCREASED [None]
